FAERS Safety Report 9986034 (Version 1)
Quarter: 2014Q1

REPORT INFORMATION
  Report Type: Report from Study
  Country: US (occurrence: US)
  Receive Date: 20140307
  Receipt Date: 20140307
  Transmission Date: 20141002
  Serious: No
  Sender: FDA-Public Use
  Company Number: US-ABBVIE-13P-163-1086153-00

PATIENT
  Age: 65 Year
  Sex: Female

DRUGS (23)
  1. HUMIRA [Suspect]
     Indication: CROHN^S DISEASE
     Dosage: LOADING DOSE
     Dates: start: 20130409, end: 20130409
  2. HUMIRA [Suspect]
     Dosage: LOADING DOSE
     Dates: start: 20130410, end: 20130410
  3. HUMIRA [Suspect]
     Dosage: LOADING DOSE
     Dates: start: 20130423
  4. ASACOL [Concomitant]
     Indication: CROHN^S DISEASE
  5. AZATHIOPRINE [Concomitant]
     Indication: CROHN^S DISEASE
     Dosage: 50 MG DAILY
  6. WELLBUTRIN [Concomitant]
     Indication: DEPRESSION
  7. SEROQUEL [Concomitant]
     Indication: INSOMNIA
     Dosage: AT BEDTIME
  8. XANAX [Concomitant]
     Indication: ANXIETY
  9. SAVELLA [Concomitant]
     Indication: FIBROMYALGIA
  10. MOBIC [Concomitant]
     Indication: ARTHRITIS
     Dosage: 15 MG DAILY IN AM
  11. REMERON [Concomitant]
     Indication: INSOMNIA
     Dosage: AT BEDTIME
  12. REMERON [Concomitant]
     Indication: DEPRESSION
  13. SINGULAR [Concomitant]
     Indication: HYPERSENSITIVITY
     Dosage: 10 MG DAILY
  14. ATENOLOL [Concomitant]
     Indication: MIGRAINE
  15. CELEXA [Concomitant]
     Indication: DEPRESSION
     Dosage: 20 MG DAILY
  16. PRAVACHOL [Concomitant]
     Indication: BLOOD CHOLESTEROL
     Dosage: 20 MG DAILY AT BEDTIME
  17. SYNTHROID [Concomitant]
     Indication: MINERAL METABOLISM DISORDER
     Dosage: 150 MG DAILY
  18. ESTRACE [Concomitant]
     Indication: HORMONE REPLACEMENT THERAPY
     Dosage: 2 MG DAILY
  19. TOPAMAX [Concomitant]
     Indication: MIGRAINE
  20. KEPTRA [Concomitant]
     Indication: MIGRAINE
  21. LASIX [Concomitant]
     Indication: OEDEMA PERIPHERAL
     Dosage: 40 MG DAILY
  22. NEXIUM [Concomitant]
     Indication: GASTRIC DISORDER
     Dosage: 40 MG DAILY
  23. NEXIUM [Concomitant]
     Indication: OESOPHAGEAL DISORDER

REACTIONS (2)
  - Back pain [Not Recovered/Not Resolved]
  - Incorrect product storage [Unknown]
